FAERS Safety Report 6602064-3 (Version None)
Quarter: 2010Q1

REPORT INFORMATION
  Report Type: 
  Country: None (occurrence: None)
  Receive Date: 20100225
  Receipt Date: 20100217
  Transmission Date: 20100710
  Serious: Yes (Other)
  Sender: FDA-Public Use
  Company Number: GB-BRISTOL-MYERS SQUIBB COMPANY-14929673

PATIENT
  Age: 78 Year
  Sex: Male
  Weight: 69 kg

DRUGS (11)
  1. APROVEL [Suspect]
     Indication: BLOOD PRESSURE INCREASED
     Dosage: 300MG+150MG AT NIGHT,  DOSE REDUCED TO 150MG  2006-2009
     Route: 048
     Dates: start: 20060101
  2. FUROSEMIDE [Concomitant]
     Dosage: 1-2 TABS QUANT:56 TABS TABS
  3. DILTIAZEM [Concomitant]
     Dosage: 1 DF-120 MG DILZEM SR 120. QUANT:56 CAPS. LAST ISSUED-09/FEB/2010
  4. SALMETEROL + FLUTICASONE [Concomitant]
     Dosage: 1 DF-250MCG+50MCG QUANT:1 INHALER. LAST ISSUED-19/JAN/2010
     Route: 055
  5. SALBUTAMOL INHALER [Concomitant]
     Dosage: 1 DF-200MCG/D 1-2 QUANT:1 INHALER
  6. PARACETAMOL TABS [Concomitant]
     Dosage: 1 OR 2 TO BE TAKEN FOUR TIMES  QUANT:100 TABS. LAST ISSUED-18/JAN/2010
  7. DOXAZOSIN MESILATE [Concomitant]
     Dosage: DOXAZOSIN MESILATE TABS  QUANT:56 TABS
  8. SIMVASTATIN [Concomitant]
     Dosage: AT NIGHT QUANT:2X28 TABS. LAST ISSUED-18/JAN/2010
  9. ASPIRIN [Concomitant]
     Dosage: ASPIRIN E/C TABS QUANT:56 TABS. LAST ISSUED-21/MAY/2009
  10. GLUCOPHAGE XR [Concomitant]
     Dosage: QUANT:168 TABS. LAST ISSUED-18/JAN/2010
  11. OMEPRAZOLE [Concomitant]
     Dosage: QUANT:28 CAPS. LAST ISSUED-18/JAN/2010

REACTIONS (7)
  - CAPILLARY DISORDER [None]
  - INFLAMMATION [None]
  - OEDEMA PERIPHERAL [None]
  - PHLEBITIS SUPERFICIAL [None]
  - POST THROMBOTIC SYNDROME [None]
  - SUBCUTANEOUS NODULE [None]
  - VENOUS INSUFFICIENCY [None]
